FAERS Safety Report 5085195-1 (Version None)
Quarter: 2006Q3

REPORT INFORMATION
  Report Type: 
  Country: None (occurrence: None)
  Receive Date: 20060816
  Receipt Date: 20060803
  Transmission Date: 20061208
  Serious: Yes (Hospitalization)
  Sender: FDA-Public Use
  Company Number: 2006EU002167

PATIENT
  Age: 22 Year
  Sex: Male

DRUGS (6)
  1. PROGRAF [Suspect]
     Dosage: 5.5 MG, UID/QD, ORAL
     Route: 048
     Dates: start: 20000101
  2. TOPIRAMATE [Suspect]
     Dosage: 2 DF, UID/QD, ORAL
     Route: 048
  3. NEXIUM [Suspect]
     Dosage: 40 MG, UID/QD, ORAL
     Route: 048
  4. NORMISON(TEMAZEPAM) 10 MG [Suspect]
     Dosage: 1 DF, UID/QD, ORAL
     Route: 048
  5. AZATHIOPRINE [Suspect]
     Dosage: 37.5 MG, UID/QD, ORAL
     Route: 048
  6. ELISOR(PRAVASTATIN SODIUM) 20MG [Suspect]
     Dosage: 2 DF, UID/QD, ORAL
     Route: 048

REACTIONS (6)
  - AREFLEXIA [None]
  - DYSAESTHESIA [None]
  - METABOLIC ACIDOSIS [None]
  - MOBILITY DECREASED [None]
  - PARAESTHESIA [None]
  - RENAL FAILURE ACUTE [None]
